FAERS Safety Report 21798748 (Version 1)
Quarter: 2022Q4

REPORT INFORMATION
  Report Type: Spontaneous
  Country: US (occurrence: US)
  Receive Date: 20221230
  Receipt Date: 20221230
  Transmission Date: 20230113
  Serious: Yes (Other)
  Sender: FDA-Public Use
  Company Number: US-BRISTOL-MYERS SQUIBB COMPANY-2022-158739

PATIENT
  Age: 64 Year
  Sex: Male

DRUGS (3)
  1. POMALYST [Suspect]
     Active Substance: POMALIDOMIDE
     Indication: Pancytopenia
     Dosage: TAKE 1 CAPSULE BY MOUTH DAILY FOR 14 DAYS FOLLOWED BY 14 DAYS OFF
     Route: 048
     Dates: start: 20220924
  2. MUCINEX [Concomitant]
     Active Substance: GUAIFENESIN
     Indication: Product used for unknown indication
     Dosage: 600 MG TAB ER
  3. VALTREX [Concomitant]
     Active Substance: VALACYCLOVIR HYDROCHLORIDE
     Indication: Product used for unknown indication

REACTIONS (2)
  - Leukopenia [Unknown]
  - Off label use [Unknown]
